FAERS Safety Report 8560944-6 (Version None)
Quarter: 2012Q3

REPORT INFORMATION
  Report Type: 
  Country: None (occurrence: None)
  Receive Date: 20120802
  Receipt Date: 20120726
  Transmission Date: 20120928
  Serious: Yes (Death, Hospitalization)
  Sender: FDA-Public Use
  Company Number: JP-ELI_LILLY_AND_COMPANY-JP201203006695

PATIENT
  Sex: Female

DRUGS (2)
  1. FORTEO [Suspect]
     Dosage: UNK
     Route: 058
     Dates: start: 20120210
  2. FORTEO [Suspect]
     Dosage: UNK
     Route: 058
     Dates: end: 20120618

REACTIONS (6)
  - EXPIRED DRUG ADMINISTERED [None]
  - DEATH [None]
  - PNEUMONIA [None]
  - NAUSEA [None]
  - DECREASED APPETITE [None]
  - CHEST DISCOMFORT [None]
